FAERS Safety Report 18594298 (Version 1)
Quarter: 2020Q4

REPORT INFORMATION
  Report Type: Spontaneous
  Country: DE (occurrence: DE)
  Receive Date: 20201209
  Receipt Date: 20201209
  Transmission Date: 20210114
  Serious: Yes (Other)
  Sender: FDA-Public Use
  Company Number: DE-GLAXOSMITHKLINE-DE2020239904

PATIENT
  Age: 23 Year
  Sex: Female

DRUGS (1)
  1. IMIGRAN NASAL SPRAY [Suspect]
     Active Substance: SUMATRIPTAN
     Indication: MIGRAINE
     Dosage: UNK,20 MG

REACTIONS (1)
  - Hallucination, visual [Recovered/Resolved]
